FAERS Safety Report 18124938 (Version 1)
Quarter: 2020Q3

REPORT INFORMATION
  Report Type: Spontaneous
  Country: US (occurrence: US)
  Receive Date: 20200807
  Receipt Date: 20200807
  Transmission Date: 20201103
  Serious: Yes (Hospitalization, Other)
  Sender: FDA-Public Use
  Company Number: US-MSNLABS-2020MSNLIT00154

PATIENT
  Weight: 2.6 kg

DRUGS (2)
  1. TEMOZOLOMIDE. [Suspect]
     Active Substance: TEMOZOLOMIDE
     Indication: PRODUCT USED FOR UNKNOWN INDICATION
     Dosage: THE EMBRYO WAS POTENTIALLY EXPOSED 2.5 GRAMS OF TEMOZOLOMIDE
     Route: 064
  2. CAPECITABINE TABLETS 500 MG [Suspect]
     Active Substance: CAPECITABINE
     Indication: PRODUCT USED FOR UNKNOWN INDICATION
     Dosage: EMBRYO WAS POTENTIALLY EXPOSED TO 28 GRAMS OF CAPECITABINE
     Route: 064

REACTIONS (2)
  - Jaundice neonatal [None]
  - Foetal exposure during pregnancy [Unknown]
